FAERS Safety Report 10074651 (Version 1)
Quarter: 2014Q2

REPORT INFORMATION
  Report Type: Spontaneous
  Country: US (occurrence: US)
  Receive Date: 20140414
  Receipt Date: 20140414
  Transmission Date: 20141212
  Serious: No
  Sender: FDA-Public Use
  Company Number: US-009507513-1404USA005642

PATIENT
  Age: 23 Year
  Sex: Female

DRUGS (2)
  1. NUVARING [Suspect]
     Indication: ENDOMETRIOSIS
     Dosage: 3 WEEKS IN, NO BREAK
     Route: 067
     Dates: start: 201403
  2. NUVARING [Suspect]
     Indication: CONTRACEPTION

REACTIONS (3)
  - Inappropriate schedule of drug administration [Unknown]
  - Drug administration error [Unknown]
  - Drug prescribing error [Unknown]
